FAERS Safety Report 13382183 (Version 1)
Quarter: 2017Q1

REPORT INFORMATION
  Report Type: Report from Study
  Country: BR (occurrence: BR)
  Receive Date: 20170329
  Receipt Date: 20170329
  Transmission Date: 20170429
  Serious: Yes (Death, Other)
  Sender: FDA-Public Use
  Company Number: PHHY2017BR016958

PATIENT
  Sex: Male
  Weight: 48 kg

DRUGS (1)
  1. EXELON PATCH [Suspect]
     Active Substance: RIVASTIGMINE
     Indication: MEMORY IMPAIRMENT
     Dosage: 2 DF (USES 1 PATCH WHEN IT LARGEST AND WHEN IT SMALLEST 2 PATCHES), UNK
     Route: 062

REACTIONS (2)
  - Death [Fatal]
  - Drug administration error [Not Recovered/Not Resolved]
